FAERS Safety Report 19448997 (Version 1)
Quarter: 2021Q2

REPORT INFORMATION
  Report Type: Spontaneous
  Country: US (occurrence: US)
  Receive Date: 20210622
  Receipt Date: 20210622
  Transmission Date: 20210717
  Serious: No
  Sender: FDA-Public Use
  Company Number: US-BAYER-2021-157015

PATIENT
  Age: 80 Year
  Sex: Female
  Weight: 49.4 kg

DRUGS (9)
  1. RIOCIGUAT. [Concomitant]
     Active Substance: RIOCIGUAT
  2. TREPROSTINIL SODIUM [Suspect]
     Active Substance: TREPROSTINIL SODIUM
     Indication: PULMONARY ARTERIAL HYPERTENSION
     Dosage: CONCENTRATION OF 1.0MG/ML
     Route: 042
     Dates: start: 20201117
  3. TREPROSTINIL SODIUM [Suspect]
     Active Substance: TREPROSTINIL SODIUM
     Indication: PULMONARY ARTERIAL HYPERTENSION
     Dosage: 0.050 ?G/KG, CONTINUING, IV DRIP
  4. REMODULIN [Concomitant]
     Active Substance: TREPROSTINIL
     Dosage: 0.050 ?G/KG
     Route: 042
  5. MIRALAX [Suspect]
     Active Substance: POLYETHYLENE GLYCOL 3350
     Indication: CONSTIPATION
  6. MACITENTAN [Concomitant]
     Active Substance: MACITENTAN
  7. ENEMA [SODIUM CHLORIDE] [Concomitant]
     Indication: CONSTIPATION
  8. MIRALAX [Suspect]
     Active Substance: POLYETHYLENE GLYCOL 3350
     Indication: GASTROINTESTINAL PAIN
     Dosage: UNK
     Route: 048
     Dates: start: 2021
  9. TREPROSTINIL SODIUM [Suspect]
     Active Substance: TREPROSTINIL SODIUM
     Indication: PULMONARY ARTERIAL HYPERTENSION
     Dosage: 0.046 ?G/KG, CONTINUING, IV DRIP

REACTIONS (6)
  - Decreased appetite [Not Recovered/Not Resolved]
  - Headache [Not Recovered/Not Resolved]
  - Abdominal pain upper [Not Recovered/Not Resolved]
  - Gastric dilatation [Unknown]
  - Seasonal allergy [Unknown]
  - Asthenia [Not Recovered/Not Resolved]

NARRATIVE: CASE EVENT DATE: 2021
